FAERS Safety Report 14542697 (Version 1)
Quarter: 2018Q1

REPORT INFORMATION
  Report Type: Spontaneous
  Country: GB (occurrence: GB)
  Receive Date: 20180216
  Receipt Date: 20180216
  Transmission Date: 20180509
  Serious: Yes (Hospitalization, Other)
  Sender: FDA-Public Use
  Company Number: GB-OTSUKA-DJ201401692

PATIENT

DRUGS (2)
  1. ABILIFY [Suspect]
     Active Substance: ARIPIPRAZOLE
     Indication: PSYCHOTIC DISORDER
     Route: 048
     Dates: start: 20140127, end: 20140212
  2. LOFEPRAMINE [Suspect]
     Active Substance: LOFEPRAMINE
     Indication: DEPRESSION
     Route: 048
     Dates: start: 20140131, end: 20140212

REACTIONS (6)
  - Pyrexia [Unknown]
  - Sputum purulent [Unknown]
  - Chest X-ray abnormal [Unknown]
  - Liver function test abnormal [Unknown]
  - Off label use [Unknown]
  - Jaundice [Unknown]

NARRATIVE: CASE EVENT DATE: 20140127
